FAERS Safety Report 9689820 (Version 1)
Quarter: 2013Q4

REPORT INFORMATION
  Report Type: Spontaneous
  Country: US (occurrence: US)
  Receive Date: 20131115
  Receipt Date: 20131115
  Transmission Date: 20140711
  Serious: Yes (Other)
  Sender: FDA-Public Use
  Company Number: US-BRISTOL-MYERS SQUIBB COMPANY-19789379

PATIENT
  Age: 60 Year
  Sex: Female
  Weight: 88.43 kg

DRUGS (4)
  1. COUMADIN [Suspect]
  2. MORPHINE SULFATE [Suspect]
     Indication: PAIN
     Dosage: 1 DF:1/2 PILLS
  3. ASPIRIN [Concomitant]
  4. HYDROCHLOROTHIAZIDE [Concomitant]

REACTIONS (2)
  - Suicidal ideation [Unknown]
  - Visual impairment [Unknown]
